FAERS Safety Report 10485569 (Version 1)
Quarter: 2014Q4

REPORT INFORMATION
  Report Type: Report from Study
  Country: GB (occurrence: GB)
  Receive Date: 20141001
  Receipt Date: 20141001
  Transmission Date: 20150528
  Serious: Yes (Death)
  Sender: FDA-Public Use
  Company Number: GB-ROCHE-1468308

PATIENT
  Age: 50 Year
  Sex: Female

DRUGS (5)
  1. EPIRUBICIN HYDROCHLORIDE. [Concomitant]
     Active Substance: EPIRUBICIN HYDROCHLORIDE
     Route: 042
     Dates: end: 20140506
  2. APREPITANT. [Concomitant]
     Active Substance: APREPITANT
     Indication: OESOPHAGEAL CARCINOMA
     Route: 048
     Dates: end: 20140506
  3. APREPITANT. [Concomitant]
     Active Substance: APREPITANT
     Route: 048
     Dates: end: 20140506
  4. CISPLATIN. [Concomitant]
     Active Substance: CISPLATIN
     Route: 042
     Dates: end: 20140506
  5. CAPECITABINE. [Suspect]
     Active Substance: CAPECITABINE
     Indication: OESOPHAGEAL CARCINOMA
     Route: 048
     Dates: end: 20140506

REACTIONS (1)
  - Death [Fatal]
